FAERS Safety Report 15646936 (Version 2)
Quarter: 2019Q1

REPORT INFORMATION
  Report Type: Spontaneous
  Country: FR (occurrence: FR)
  Receive Date: 20181122
  Receipt Date: 20190326
  Transmission Date: 20190417
  Serious: Yes (Other)
  Sender: FDA-Public Use
  Company Number: FR-B.I. PHARMACEUTICALS,INC./RIDGEFIELD-2018-12-003752

PATIENT
  Age: 25 Year
  Sex: Female

DRUGS (6)
  1. SUFENTANIL [Suspect]
     Active Substance: SUFENTANIL
     Indication: SPINAL ANAESTHESIA
     Dosage: ; IN TOTAL
     Route: 008
     Dates: start: 20180909, end: 20180909
  2. CATAPRESSAN [Suspect]
     Active Substance: CLONIDINE
     Indication: SPINAL ANAESTHESIA
     Dosage: ; IN TOTAL
     Route: 008
     Dates: start: 20180909, end: 20180909
  3. GENTAMICINE PANPHARMA [Suspect]
     Active Substance: GENTAMICIN
     Indication: ANTIBIOTIC PROPHYLAXIS
     Dosage: 3MG/KG UNE FOIS SOIT 180 MG; IN TOTAL
     Route: 042
     Dates: start: 20180909, end: 20180909
  4. INEXIUM [Suspect]
     Active Substance: ESOMEPRAZOLE
     Indication: GASTROOESOPHAGEAL REFLUX DISEASE
     Dosage: 20 MG, OCCASIONNELLEMENT LORS DE LA GROSSESSE
     Route: 048
     Dates: start: 201801, end: 20180909
  5. LEVOBUPIVACAINE KABI [Suspect]
     Active Substance: LEVOBUPIVACAINE HYDROCHLORIDE
     Indication: SPINAL ANAESTHESIA
     Dosage: 0.625 MG/ML
     Route: 008
     Dates: start: 20180909, end: 20180909
  6. CEFTRIAXONE. [Suspect]
     Active Substance: CEFTRIAXONE
     Indication: ANTIBIOTIC PROPHYLAXIS
     Dosage: ; IN TOTAL
     Route: 042
     Dates: start: 20180909, end: 20180909

REACTIONS (1)
  - Pancreatitis acute [Recovered/Resolved]

NARRATIVE: CASE EVENT DATE: 20180912
